FAERS Safety Report 13515489 (Version 18)
Quarter: 2018Q3

REPORT INFORMATION
  Report Type: Report from Study
  Country: CA (occurrence: CA)
  Receive Date: 20170504
  Receipt Date: 20180918
  Transmission Date: 20181010
  Serious: Yes (Hospitalization, Other)
  Sender: FDA-Public Use
  Company Number: PHHY2015CA119805

PATIENT
  Age: 43 Year
  Sex: Male

DRUGS (6)
  1. SANDOSTATIN [Suspect]
     Active Substance: OCTREOTIDE ACETATE
     Indication: NEUROENDOCRINE CARCINOMA METASTATIC
     Dosage: 200 UG, BID (TO CONTINUE 2 WEEKS
     Route: 058
     Dates: start: 20150501, end: 201508
  2. SANDOSTATIN LAR DEPOT [Suspect]
     Active Substance: OCTREOTIDE ACETATE
     Dosage: 30 MG, (EVERY 2 WEEKS)
     Route: 030
     Dates: start: 20170126, end: 20170406
  3. SANDOSTATIN LAR DEPOT [Suspect]
     Active Substance: OCTREOTIDE ACETATE
     Dosage: 60 MG, QMO  (EVERY 4 WEEKS)
     Route: 030
     Dates: start: 20160121
  4. SANDOSTATIN LAR DEPOT [Suspect]
     Active Substance: OCTREOTIDE ACETATE
     Indication: NEUROENDOCRINE CARCINOMA METASTATIC
     Dosage: 30 MG, QMO  (EVERY 4 WEEKS)
     Route: 030
     Dates: start: 20150731
  5. COUMADINE [Concomitant]
     Active Substance: WARFARIN SODIUM
     Indication: PRODUCT USED FOR UNKNOWN INDICATION
     Route: 065
  6. SANDOSTATIN LAR DEPOT [Suspect]
     Active Substance: OCTREOTIDE ACETATE
     Dosage: 60 MG, (EVERY 2 WEEKS)
     Route: 030
     Dates: start: 20170504

REACTIONS (29)
  - Epistaxis [Unknown]
  - Herpes zoster [Unknown]
  - Fatigue [Unknown]
  - Abdominal pain upper [Unknown]
  - Malignant neoplasm progression [Not Recovered/Not Resolved]
  - Pain [Not Recovered/Not Resolved]
  - Asthenia [Unknown]
  - Abdominal distension [Unknown]
  - Decreased appetite [Unknown]
  - Injection site haemorrhage [Unknown]
  - Neoplasm [Unknown]
  - Blood pressure increased [Unknown]
  - Weight decreased [Unknown]
  - International normalised ratio abnormal [Unknown]
  - Cystitis [Unknown]
  - Vomiting [Unknown]
  - Injection site mass [Unknown]
  - Body temperature decreased [Unknown]
  - Intestinal obstruction [Unknown]
  - Renal disorder [Unknown]
  - Diarrhoea [Unknown]
  - Needle issue [Unknown]
  - Inappropriate schedule of drug administration [Unknown]
  - Nephrolithiasis [Unknown]
  - Muscle spasms [Unknown]
  - Cardiac disorder [Unknown]
  - Malaise [Unknown]
  - Oral pain [Unknown]
  - Nausea [Unknown]

NARRATIVE: CASE EVENT DATE: 201509
